FAERS Safety Report 10261419 (Version 1)
Quarter: 2014Q2

REPORT INFORMATION
  Report Type: Spontaneous
  Country: US (occurrence: US)
  Receive Date: 20140626
  Receipt Date: 20140626
  Transmission Date: 20141212
  Serious: Yes (Other)
  Sender: FDA-Public Use
  Company Number: US-JNJFOC-20140613453

PATIENT
  Sex: Male

DRUGS (3)
  1. INVEGA SUSTENNA [Suspect]
     Indication: SCHIZOPHRENIA
     Route: 030
  2. ANTIBIOTIC (UNSPECIFIED) [Concomitant]
     Indication: CELLULITIS
     Dates: start: 20140614
  3. DIURETIC (NAME UNSPECIFIED) [Concomitant]
     Indication: CELLULITIS
     Route: 065
     Dates: start: 20140614

REACTIONS (2)
  - Cellulitis [Unknown]
  - Drug dose omission [Not Recovered/Not Resolved]
